FAERS Safety Report 21156239 (Version 2)
Quarter: 2022Q3

REPORT INFORMATION
  Report Type: Report from Study
  Country: US (occurrence: US)
  Receive Date: 20220801
  Receipt Date: 20220830
  Transmission Date: 20221027
  Serious: Yes (Other)
  Sender: FDA-Public Use
  Company Number: US-BRISTOL-MYERS SQUIBB COMPANY-2022-044638

PATIENT
  Age: 66 Year
  Sex: Female
  Weight: 117.93 kg

DRUGS (1)
  1. ZEPOSIA [Suspect]
     Active Substance: OZANIMOD HYDROCHLORIDE
     Indication: Colitis ulcerative
     Route: 048
     Dates: start: 20220503

REACTIONS (10)
  - Fatigue [Unknown]
  - Haematochezia [Unknown]
  - Dyspnoea [Unknown]
  - Arthralgia [Unknown]
  - Cough [Unknown]
  - Abdominal discomfort [Unknown]
  - Weight increased [Unknown]
  - Feeling abnormal [Unknown]
  - Mucous stools [Unknown]
  - Therapeutic product effect incomplete [Unknown]
